FAERS Safety Report 11527527 (Version 1)
Quarter: 2015Q3

REPORT INFORMATION
  Report Type: Spontaneous
  Country: US (occurrence: US)
  Receive Date: 20150903
  Receipt Date: 20150903
  Transmission Date: 20151125
  Serious: No
  Sender: FDA-Public Use
  Company Number: US-ELI_LILLY_AND_COMPANY-US200907000945

PATIENT
  Sex: Female

DRUGS (3)
  1. NOVOLOG MIX 70/30 [Concomitant]
     Active Substance: INSULIN ASPART
  2. HUMALOG MIX75/25 [Suspect]
     Active Substance: INSULIN LISPRO
  3. BYETTA [Concomitant]
     Active Substance: EXENATIDE

REACTIONS (3)
  - Blood glucose increased [Unknown]
  - Headache [Unknown]
  - Feeling hot [Unknown]
